FAERS Safety Report 21961219 (Version 2)
Quarter: 2023Q1

REPORT INFORMATION
  Report Type: Report from Study
  Country: CA (occurrence: None)
  Receive Date: 20230207
  Receipt Date: 20230214
  Transmission Date: 20230417
  Serious: Yes (Other)
  Sender: FDA-Public Use
  Company Number: CA-Merck Healthcare KGaA-9381822

PATIENT
  Age: 58 Year
  Sex: Female

DRUGS (1)
  1. REBIF [Suspect]
     Active Substance: INTERFERON BETA-1A
     Indication: Multiple sclerosis
     Route: 058
     Dates: start: 20030610

REACTIONS (5)
  - Brain neoplasm [Not Recovered/Not Resolved]
  - Transient ischaemic attack [Recovered/Resolved]
  - Multiple sclerosis [Unknown]
  - Fall [Unknown]
  - Wheelchair user [Unknown]
